FAERS Safety Report 10906432 (Version 1)
Quarter: 2015Q1

REPORT INFORMATION
  Report Type: Spontaneous
  Country: IN (occurrence: IN)
  Receive Date: 20150312
  Receipt Date: 20150312
  Transmission Date: 20150721
  Serious: Yes (Other)
  Sender: FDA-Public Use
  Company Number: IN-ROCHE-1548195

PATIENT
  Sex: Female

DRUGS (2)
  1. HERCEPTIN [Suspect]
     Active Substance: TRASTUZUMAB
     Indication: BREAST CANCER
     Dosage: 9 ROUNDS OF HERCEPTIN THERAPY
     Route: 065
  2. ABRAXANE [Suspect]
     Active Substance: PACLITAXEL
     Indication: BREAST CANCER
     Dosage: 9ROUNDS OF CHEMO
     Route: 065

REACTIONS (3)
  - Drug ineffective [Unknown]
  - Recurrent cancer [Unknown]
  - Disease progression [Unknown]
